FAERS Safety Report 14511373 (Version 1)
Quarter: 2018Q1

REPORT INFORMATION
  Report Type: Spontaneous
  Country: US (occurrence: US)
  Receive Date: 20180209
  Receipt Date: 20180209
  Transmission Date: 20180509
  Serious: Yes (Hospitalization)
  Sender: FDA-Public Use
  Company Number: US-THE PROACTIV LLC-2041700

PATIENT
  Age: 40 Year
  Sex: Female

DRUGS (7)
  1. PROACTIV GREEN TEA MOISTURIZER [Suspect]
     Active Substance: COSMETICS
     Route: 061
     Dates: start: 20180110, end: 20180130
  2. PROACTIV SOLUTION ADVANCED DAILY OIL CONTROL [Suspect]
     Active Substance: SALICYLIC ACID
     Route: 061
     Dates: start: 20180110, end: 20180130
  3. PROACTIV SOLUTION BB BROAD SPECTRUM SPF 15 (LIGHT, MEDIUM, DARK) [Suspect]
     Active Substance: OCTINOXATE\OCTISALATE\OXYBENZONE
     Route: 061
     Dates: start: 20180110, end: 20180130
  4. PROACTIV REPAIRING TREATMENT [Suspect]
     Active Substance: BENZOYL PEROXIDE
     Route: 061
     Dates: start: 20180110, end: 20180130
  5. PROACTIV REVITALIZING TONER COMBINATION THERAPY ACNE TREATMENT [Suspect]
     Active Substance: SALICYLIC ACID
     Route: 061
     Dates: start: 20180110, end: 20180130
  6. REMICADE [Interacting]
     Active Substance: INFLIXIMAB
  7. PROACTIV SOLUTION RENEWING CLEANSER [Suspect]
     Active Substance: BENZOYL PEROXIDE
     Route: 061
     Dates: start: 20180110, end: 20180130

REACTIONS (5)
  - Chemical burn of skin [Not Recovered/Not Resolved]
  - Skin burning sensation [Not Recovered/Not Resolved]
  - Skin erosion [Not Recovered/Not Resolved]
  - Skin irritation [Not Recovered/Not Resolved]
  - Skin exfoliation [Not Recovered/Not Resolved]

NARRATIVE: CASE EVENT DATE: 20180113
